FAERS Safety Report 15866049 (Version 1)
Quarter: 2019Q1

REPORT INFORMATION
  Report Type: Spontaneous
  Country: US (occurrence: US)
  Receive Date: 20190125
  Receipt Date: 20190125
  Transmission Date: 20190417
  Serious: Yes (Other)
  Sender: FDA-Public Use
  Company Number: US-AMGEN INC.-USASP2019011665

PATIENT
  Age: 45 Year
  Sex: Female

DRUGS (6)
  1. MAXALT [Concomitant]
     Active Substance: RIZATRIPTAN BENZOATE
     Dosage: UNK
  2. XANAX [Concomitant]
     Active Substance: ALPRAZOLAM
     Dosage: UNK
  3. AIMOVIG [Suspect]
     Active Substance: ERENUMAB-AOOE
     Indication: PRODUCT USED FOR UNKNOWN INDICATION
     Dosage: UNK
     Route: 065
     Dates: start: 2018
  4. TOPAMAX [Concomitant]
     Active Substance: TOPIRAMATE
     Dosage: UNK
  5. MAGNESIUM [Concomitant]
     Active Substance: MAGNESIUM
     Dosage: UNK
  6. EFFEXOR [Concomitant]
     Active Substance: VENLAFAXINE HYDROCHLORIDE
     Dosage: UNK

REACTIONS (1)
  - Nephrolithiasis [Unknown]
